FAERS Safety Report 22601235 (Version 1)
Quarter: 2023Q2

REPORT INFORMATION
  Report Type: Spontaneous
  Country: US (occurrence: US)
  Receive Date: 20230614
  Receipt Date: 20230614
  Transmission Date: 20230721
  Serious: No
  Sender: FDA-Public Use
  Company Number: US RIGEL Pharmaceuticals, INC -2022FOS001055

PATIENT
  Sex: Female

DRUGS (1)
  1. TAVALISSE [Suspect]
     Active Substance: FOSTAMATINIB
     Indication: Immune thrombocytopenia
     Dosage: 150 MG, BID
     Route: 048

REACTIONS (6)
  - Extrasystoles [Unknown]
  - Platelet count decreased [Unknown]
  - Anxiety [Unknown]
  - Lung disorder [Unknown]
  - Ulcer [Unknown]
  - Dyspnoea [Unknown]
